FAERS Safety Report 6358651-3 (Version None)
Quarter: 2009Q3

REPORT INFORMATION
  Report Type: 
  Country: None (occurrence: None)
  Receive Date: 20090916
  Receipt Date: 20090901
  Transmission Date: 20100115
  Serious: Yes (Disabling, Other)
  Sender: FDA-Public Use
  Company Number: US-ALLERGAN-0603106US

PATIENT
  Age: 44 Year
  Sex: Female
  Weight: 63.492 kg

DRUGS (7)
  1. BOTOX COSMETIC [Suspect]
     Indication: SKIN WRINKLING
     Dosage: 50 UNITS, SINGLE
     Route: 030
     Dates: start: 20060714, end: 20060714
  2. BOTOX COSMETIC [Suspect]
     Dosage: 56 UNITS, SINGLE
     Route: 030
     Dates: start: 20060427, end: 20060427
  3. RESTYLANE [Suspect]
     Indication: SKIN WRINKLING
     Dosage: 1 ML, UNK
     Dates: start: 20060714, end: 20060714
  4. XYLOCAINE W/ EPINEPHRINE [Suspect]
     Indication: ANAESTHESIA
     Dosage: 2 ML, SINGLE
     Dates: start: 20060714, end: 20060714
  5. ATENOLOL [Concomitant]
     Indication: CARDIOMYOPATHY
     Dosage: 50 MG, QD
     Route: 048
     Dates: end: 20070223
  6. OBAGI SKIN PRODUCTS 2006 [Concomitant]
     Indication: DRUG USE FOR UNKNOWN INDICATION
  7. PROTEIN POWDER [Concomitant]
     Indication: DRUG USE FOR UNKNOWN INDICATION

REACTIONS (28)
  - ACCOMMODATION DISORDER [None]
  - ANGER [None]
  - ARTHRALGIA [None]
  - ASTHENIA [None]
  - BLOOD CREATINE PHOSPHOKINASE INCREASED [None]
  - BOTULISM [None]
  - DEPRESSION [None]
  - DIPLOPIA [None]
  - DYSARTHRIA [None]
  - DYSPHAGIA [None]
  - DYSPNOEA [None]
  - EXTRAOCULAR MUSCLE DISORDER [None]
  - FATIGUE [None]
  - GAIT DISTURBANCE [None]
  - HYPOAESTHESIA [None]
  - MUSCULAR WEAKNESS [None]
  - MYALGIA [None]
  - MYASTHENIA GRAVIS [None]
  - MYOSITIS [None]
  - NEURITIS [None]
  - PAIN [None]
  - PALPITATIONS [None]
  - PARAESTHESIA [None]
  - POLYNEUROPATHY [None]
  - SLEEP DISORDER [None]
  - VISION BLURRED [None]
  - VISUAL ACUITY REDUCED [None]
  - WRONG TECHNIQUE IN DRUG USAGE PROCESS [None]
